FAERS Safety Report 18847175 (Version 2)
Quarter: 2021Q2

REPORT INFORMATION
  Report Type: Spontaneous
  Country: US (occurrence: US)
  Receive Date: 20210204
  Receipt Date: 20210405
  Transmission Date: 20210717
  Serious: No
  Sender: FDA-Public Use
  Company Number: US-PFIZER INC-2021106472

PATIENT
  Age: 38 Year
  Sex: Female
  Weight: 68.03 kg

DRUGS (4)
  1. IBRANCE [Suspect]
     Active Substance: PALBOCICLIB
     Dosage: 125 MG, CYCLIC (1 DAILY FOR 21 DAYS/ 21 DAYS ON, 7 DAYS OFF)
     Route: 048
     Dates: start: 20210119
  2. IBRANCE [Suspect]
     Active Substance: PALBOCICLIB
     Indication: BREAST CANCER FEMALE
     Dosage: 125 MG, CYCLIC (1 DAILY FOR 21 DAYS/ 21 DAYS ON, 7 DAYS OFF)
     Route: 048
     Dates: start: 20210119
  3. LETROZOLE. [Concomitant]
     Active Substance: LETROZOLE
     Dosage: 2.5 MG, UNK
  4. FLONASE ALLERGY RELIEF [Concomitant]
     Active Substance: FLUTICASONE PROPIONATE
     Dosage: UNK

REACTIONS (5)
  - Diarrhoea [Unknown]
  - Malaise [Unknown]
  - Headache [Unknown]
  - Stomatitis [Unknown]
  - Oral discomfort [Unknown]

NARRATIVE: CASE EVENT DATE: 2021
